FAERS Safety Report 19188590 (Version 1)
Quarter: 2021Q2

REPORT INFORMATION
  Report Type: Spontaneous
  Country: CN (occurrence: CN)
  Receive Date: 20210428
  Receipt Date: 20210428
  Transmission Date: 20210717
  Serious: Yes (Other)
  Sender: FDA-Public Use
  Company Number: CN-ROCHE-2816479

PATIENT
  Age: 55 Year
  Sex: Male
  Weight: 55.5 kg

DRUGS (1)
  1. ACTILYSE [Suspect]
     Active Substance: ALTEPLASE
     Indication: CEREBRAL INFARCTION
     Route: 042
     Dates: start: 20210303, end: 20210303

REACTIONS (4)
  - Dysarthria [Unknown]
  - Altered state of consciousness [Unknown]
  - Insulin shock therapy [Unknown]
  - Tremor [Unknown]

NARRATIVE: CASE EVENT DATE: 20210303
